FAERS Safety Report 6942708-X (Version None)
Quarter: 2010Q3

REPORT INFORMATION
  Report Type: 
  Country: None (occurrence: None)
  Receive Date: 20100826
  Receipt Date: 20100803
  Transmission Date: 20110219
  Serious: Yes (Life-Threatening, Hospitalization)
  Sender: FDA-Public Use
  Company Number: US-BAYER-200939438NA

PATIENT
  Age: 17 Year
  Sex: Female
  Weight: 68 kg

DRUGS (4)
  1. YAZ [Suspect]
     Indication: CONTRACEPTION
     Dates: start: 20080928, end: 20090401
  2. YAZ [Suspect]
     Dates: start: 20080928, end: 20090401
  3. RANITIDINE [Concomitant]
     Dates: start: 20090101
  4. HYDROCODONE BITARTRATE [Concomitant]
     Dates: start: 20090101

REACTIONS (6)
  - ABDOMINAL PAIN [None]
  - ASTHENIA [None]
  - BACK PAIN [None]
  - CHOLELITHIASIS [None]
  - FATIGUE [None]
  - GALLBLADDER NON-FUNCTIONING [None]
